FAERS Safety Report 8623126-5 (Version None)
Quarter: 2012Q3

REPORT INFORMATION
  Report Type: 
  Country: None (occurrence: None)
  Receive Date: 20120827
  Receipt Date: 20120817
  Transmission Date: 20120928
  Serious: Yes (Other)
  Sender: FDA-Public Use
  Company Number: US-JNJFOC-20120809033

PATIENT
  Age: 67 Year
  Sex: Female
  Weight: 57.15 kg

DRUGS (9)
  1. ZOLPIDEM TARTRATE [Concomitant]
     Indication: SLEEP DISORDER THERAPY
     Dosage: 1/2 A PILL ONCE A DAY SINCE 6 MONTHS
     Route: 065
     Dates: start: 20120201
  2. AN UNKNOWN MEDICATION [Concomitant]
     Indication: CROHN'S DISEASE
     Dosage: 2/3 PER DAY SINCE 2 YEARS
     Route: 065
     Dates: start: 20100101
  3. LEVOTHYROXINE SODIUM [Concomitant]
     Indication: HYPOTHYROIDISM
     Dosage: SINCE 4 MONTHS
     Route: 065
     Dates: start: 20120401
  4. ALPRAZOLAM [Concomitant]
     Indication: DYSKINESIA
     Dosage: SINCE 18 YEARS
     Route: 065
     Dates: start: 19940101
  5. TYLENOL-500 [Suspect]
     Indication: ARTHRALGIA
     Dosage: 2 CAPLETS EVERY 8 HOURS
     Route: 048
     Dates: start: 20120707
  6. AMITRIPTYLINE HYDROCHLORIDE [Concomitant]
     Indication: SLEEP DISORDER THERAPY
     Route: 065
     Dates: start: 19940101
  7. TIZANIDINE HCL [Concomitant]
     Indication: MUSCLE RELAXANT THERAPY
     Dosage: 1 EVERY 8 HOURS SINCE 6 MONTHS
     Route: 065
     Dates: start: 20120301
  8. TYLENOL-500 [Suspect]
     Route: 048
  9. ALPRAZOLAM [Concomitant]
     Indication: ANXIETY
     Dosage: SINCE 18 YEARS
     Route: 065
     Dates: start: 19940101

REACTIONS (2)
  - HEART RATE DECREASED [None]
  - HYPERTENSION [None]
